FAERS Safety Report 18218159 (Version 1)
Quarter: 2020Q3

REPORT INFORMATION
  Report Type: Spontaneous
  Country: US (occurrence: US)
  Receive Date: 20200901
  Receipt Date: 20200901
  Transmission Date: 20201103
  Serious: No
  Sender: FDA-Public Use
  Company Number: US-NEUROCRINE BIOSCIENCES INC.-2020NBI03092

PATIENT
  Age: 66 Year
  Sex: Female
  Weight: 50.39 kg

DRUGS (3)
  1. INGREZZA [Suspect]
     Active Substance: VALBENAZINE
     Indication: TARDIVE DYSKINESIA
     Route: 048
     Dates: start: 20200710
  2. INGREZZA [Suspect]
     Active Substance: VALBENAZINE
     Dosage: STARTED ON 80?MG CAPSULES WHEN SHE USED ALL OF HER 40?MG CAPSULES
     Route: 048
     Dates: start: 2020
  3. MECLIZINE [Concomitant]
     Active Substance: MECLIZINE HYDROCHLORIDE

REACTIONS (2)
  - Cough [Unknown]
  - Drug ineffective [Unknown]

NARRATIVE: CASE EVENT DATE: 2020
